FAERS Safety Report 6093201-0 (Version None)
Quarter: 2009Q1

REPORT INFORMATION
  Report Type: 
  Country: None (occurrence: None)
  Receive Date: 20090226
  Receipt Date: 20090225
  Transmission Date: 20090719
  Serious: Yes (Hospitalization, Other)
  Sender: FDA-Public Use
  Company Number: JP-PFIZER INC-2008159587

PATIENT
  Sex: Male
  Weight: 49.5 kg

DRUGS (7)
  1. MEDROL [Suspect]
     Indication: PROPHYLAXIS AGAINST TRANSPLANT REJECTION
     Dosage: 4 MG, UNK
     Route: 048
     Dates: start: 20060601
  2. CELLCEPT [Suspect]
     Indication: PROPHYLAXIS AGAINST TRANSPLANT REJECTION
     Dosage: 1 G, 2X/DAY
     Route: 048
     Dates: start: 20060525, end: 20060529
  3. CELLCEPT [Suspect]
     Dosage: 750 MG, 2X/DAY
     Dates: start: 20060529, end: 20060726
  4. CELLCEPT [Suspect]
     Dosage: 500 MG, 2X/DAY
     Dates: start: 20060726, end: 20060809
  5. CELLCEPT [Suspect]
     Dosage: 250 MG, 2X/DAY
     Dates: start: 20060809, end: 20080116
  6. PROGRAF [Suspect]
     Indication: PROPHYLAXIS AGAINST TRANSPLANT REJECTION
     Dosage: 3.5 MG, 2X/DAY
     Route: 048
     Dates: start: 20060526, end: 20080116
  7. PROGRAF [Suspect]
     Dosage: 3 MG, 1X/DAY
     Dates: start: 20080116

REACTIONS (1)
  - CRYPTOCOCCOSIS [None]
